FAERS Safety Report 19351358 (Version 2)
Quarter: 2021Q2

REPORT INFORMATION
  Report Type: Spontaneous
  Country: FR (occurrence: FR)
  Receive Date: 20210531
  Receipt Date: 20210616
  Transmission Date: 20210717
  Serious: Yes (Other)
  Sender: FDA-Public Use
  Company Number: FR-AXELLIA-003803

PATIENT
  Age: 54 Year
  Sex: Male
  Weight: 63 kg

DRUGS (4)
  1. ASCORBIC ACID/GLUCOSE [Concomitant]
     Indication: ENTEROBACTER INFECTION
     Dosage: STRENGTH: 5 %; 3000 MG/DAY DILUTED IN 5% GLUCOSE
     Route: 042
  2. VANCOMYCIN [Suspect]
     Active Substance: VANCOMYCIN
     Indication: ENTEROCOCCAL INFECTION
     Dosage: 24 HOURS OF VANCOMYCIN (3000 MG/DAY DILUTED IN 5% GLUCOSE,
     Route: 042
  3. VANCOMYCIN [Suspect]
     Active Substance: VANCOMYCIN
     Indication: SYSTEMIC INFECTION
     Dosage: 31.25MG/ML AT A MAXIMAL DOSAGE OF 4ML/HOUR)
     Route: 042
  4. VANCOMYCIN [Suspect]
     Active Substance: VANCOMYCIN
     Indication: ENTEROBACTER INFECTION
     Dosage: 31.25MG/ML AT A MAXIMAL DOSAGE OF 4ML/HOUR)
     Route: 042

REACTIONS (6)
  - Calciphylaxis [Recovered/Resolved]
  - Drug level increased [Recovered/Resolved]
  - Infusion site extravasation [Recovered/Resolved]
  - Incorrect dose administered [Unknown]
  - Skin necrosis [Recovered/Resolved]
  - Cutaneous calcification [Recovered/Resolved]
